FAERS Safety Report 17103122 (Version 2)
Quarter: 2020Q3

REPORT INFORMATION
  Report Type: Other
  Country: US (occurrence: US)
  Receive Date: 20191203
  Receipt Date: 20200831
  Transmission Date: 20201102
  Serious: Yes (Other)
  Sender: FDA-Public Use
  Company Number: US-ROCHE-2482250

PATIENT
  Sex: Male

DRUGS (1)
  1. OCREVUS [Suspect]
     Active Substance: OCRELIZUMAB
     Indication: RELAPSING MULTIPLE SCLEROSIS
     Dosage: DATE OF TREATMENT: 07/SEP/2017,  21/SEP/2017, 08/MAR/2018, 10/SEP/2018,  27/MAR/2019, 20/SEP/2019, 2
     Route: 065

REACTIONS (1)
  - Encephalopathy [Unknown]
